FAERS Safety Report 9659866 (Version 1)
Quarter: 2013Q4

REPORT INFORMATION
  Report Type: Spontaneous
  Country: ES (occurrence: ES)
  Receive Date: 20131031
  Receipt Date: 20131031
  Transmission Date: 20140711
  Serious: Yes (Other)
  Sender: FDA-Public Use
  Company Number: ES-JNJFOC-20131018038

PATIENT
  Age: 60 Year
  Sex: Male

DRUGS (3)
  1. XARELTO [Suspect]
     Indication: THROMBOSIS PROPHYLAXIS
     Dosage: 30 TABLETS
     Route: 048
     Dates: start: 20131014, end: 201310
  2. XARELTO [Suspect]
     Indication: HIP SURGERY
     Dosage: 30 TABLETS
     Route: 048
     Dates: start: 20131014, end: 201310
  3. PARACETAMOL [Concomitant]
     Route: 048
     Dates: start: 20131014

REACTIONS (2)
  - Respiratory distress [Recovered/Resolved]
  - Dry mouth [Recovered/Resolved]
